FAERS Safety Report 8226141-9 (Version None)
Quarter: 2012Q1

REPORT INFORMATION
  Report Type: 
  Country: None (occurrence: None)
  Receive Date: 20120307
  Receipt Date: 20091229
  Transmission Date: 20120608
  Serious: No
  Sender: FDA-Public Use
  Company Number: PHEH2009US16789

PATIENT
  Age: 50 Year
  Sex: Male
  Weight: 125.6 kg

DRUGS (1)
  1. AFINITOR [Suspect]
     Indication: METASTATIC RENAL CELL CARCINOMA
     Dosage: 10 MG, QD, ORAL
     Route: 048
     Dates: start: 20090910, end: 20091218

REACTIONS (4)
  - HEADACHE [None]
  - INSOMNIA [None]
  - TOOTH ABSCESS [None]
  - PAIN IN JAW [None]
